APPROVED DRUG PRODUCT: DESMOPRESSIN ACETATE
Active Ingredient: DESMOPRESSIN ACETATE
Strength: 0.1MG
Dosage Form/Route: TABLET;ORAL
Application: A200653 | Product #001
Applicant: NATCO PHARMA USA LLC
Approved: Jun 27, 2014 | RLD: No | RS: No | Type: DISCN